FAERS Safety Report 4871023-3 (Version None)
Quarter: 2005Q4

REPORT INFORMATION
  Report Type: 
  Country: None (occurrence: None)
  Receive Date: 20051229
  Receipt Date: 20051214
  Transmission Date: 20060501
  Serious: Yes (Death)
  Sender: FDA-Public Use
  Company Number: GBR-2005-0002029

PATIENT
  Sex: Female

DRUGS (2)
  1. MS CONTIN [Suspect]
     Dosage: 200 MG, BID, ORAL
     Route: 048
  2. MORPHINE SULFATE [Concomitant]

REACTIONS (3)
  - ACCIDENTAL OVERDOSE [None]
  - MEDICATION ERROR [None]
  - PRESCRIBED OVERDOSE [None]
